FAERS Safety Report 6657068-1 (Version None)
Quarter: 2010Q1

REPORT INFORMATION
  Report Type: 
  Country: None (occurrence: None)
  Receive Date: 20100325
  Receipt Date: 20100224
  Transmission Date: 20100710
  Serious: Yes (Death)
  Sender: FDA-Public Use
  Company Number: AUR-APL-2009-00357

PATIENT
  Age: 76 Year
  Sex: Female
  Weight: 91 kg

DRUGS (10)
  1. METFORMIN HCL [Suspect]
     Dosage: 850MG - BID
  2. HYDROCHLOROTHIAZIDE [Suspect]
     Dosage: 12.5MG - DAILY
  3. ARIMIDEX [Suspect]
     Indication: BREAST CANCER
     Dosage: 1MG - DAILY - ORAL
     Route: 048
     Dates: start: 20060118
  4. NORVASC [Suspect]
     Dosage: 10MG - DAILY
  5. GLIBENCLAMIDE TABLET, PRESTAB [Suspect]
     Dosage: 1.5MG - DAILY, QAM
  6. ASPIRIN [Suspect]
     Dosage: 81MG - DAILY
  7. CALCIUM 500MG WITH VITAMIN D [Suspect]
     Indication: OSTEOPOROSIS
     Dosage: 1 TABLET - TID - ORAL
     Route: 048
  8. COZAAR [Suspect]
     Dosage: 100MG - DAILY
  9. SYNTHROID [Suspect]
     Dosage: 50 UG 5 DAYS A WEEK, 25 UG 2 DAYS A WEEK
  10. BONIVA [Suspect]
     Indication: OSTEOPOROSIS
     Dosage: 150MG - MONTHLY
     Dates: start: 20060103

REACTIONS (2)
  - CARDIAC ARREST [None]
  - SUDDEN DEATH [None]
